FAERS Safety Report 10624931 (Version 3)
Quarter: 2015Q4

REPORT INFORMATION
  Report Type: Report from Study
  Country: US (occurrence: US)
  Receive Date: 20141204
  Receipt Date: 20151008
  Transmission Date: 20160304
  Serious: Yes (Hospitalization)
  Sender: FDA-Public Use
  Company Number: US-BIOGENIDEC-2014BI124078

PATIENT
  Age: 63 Year
  Sex: Female

DRUGS (2)
  1. AVONEX [Suspect]
     Active Substance: INTERFERON BETA-1A
     Indication: MULTIPLE SCLEROSIS
     Route: 030
     Dates: start: 20070307, end: 20141103
  2. AVONEX [Suspect]
     Active Substance: INTERFERON BETA-1A
     Indication: MULTIPLE SCLEROSIS
     Route: 030
     Dates: start: 20031230, end: 20070206

REACTIONS (5)
  - Pneumonia [Recovered/Resolved]
  - Fibromyalgia [Not Recovered/Not Resolved]
  - Pneumothorax [Recovered/Resolved]
  - Lung disorder [Recovered/Resolved]
  - Diagnostic aspiration [Recovered/Resolved]

NARRATIVE: CASE EVENT DATE: 2010
